FAERS Safety Report 15218777 (Version 5)
Quarter: 2019Q1

REPORT INFORMATION
  Report Type: Report from Study
  Country: DE (occurrence: DE)
  Receive Date: 20180731
  Receipt Date: 20190325
  Transmission Date: 20190417
  Serious: Yes (Hospitalization)
  Sender: FDA-Public Use
  Company Number: DE-ROCHE-2153470

PATIENT
  Sex: Female

DRUGS (11)
  1. VESIKUR [Concomitant]
     Active Substance: SOLIFENACIN SUCCINATE
     Route: 065
  2. SERALIN [Concomitant]
     Active Substance: SERTRALINE HYDROCHLORIDE
     Dosage: 1-0-0
     Route: 065
  3. BACLOFEN. [Concomitant]
     Active Substance: BACLOFEN
     Dosage: 1-0-2
     Route: 065
  4. OCREVUS [Suspect]
     Active Substance: OCRELIZUMAB
     Route: 042
     Dates: start: 20181119
  5. LYRICA [Concomitant]
     Active Substance: PREGABALIN
     Dosage: 1-0-1
     Route: 065
  6. FAMPYRA [Concomitant]
     Active Substance: DALFAMPRIDINE
     Route: 065
  7. OCREVUS [Suspect]
     Active Substance: OCRELIZUMAB
     Indication: PRIMARY PROGRESSIVE MULTIPLE SCLEROSIS
     Dosage: SECOND INFUSION ON 08/MAY/2018
     Route: 042
     Dates: start: 20180423
  8. DEKRISTOL [Concomitant]
     Active Substance: CHOLECALCIFEROL
     Route: 065
  9. NOVALGIN (METAMIZOLE SODIUM) [Concomitant]
     Active Substance: METAMIZOLE SODIUM
     Dosage: 1-0-1
     Route: 065
  10. RAMIPRIL. [Concomitant]
     Active Substance: RAMIPRIL
     Dosage: 1-0-1
     Route: 065
  11. LYRICA [Concomitant]
     Active Substance: PREGABALIN
     Dosage: 3-0-4
     Route: 065

REACTIONS (11)
  - Restlessness [Recovering/Resolving]
  - Off label use [Unknown]
  - Paraesthesia [Not Recovered/Not Resolved]
  - Nasopharyngitis [Not Recovered/Not Resolved]
  - Hypoaesthesia [Not Recovered/Not Resolved]
  - Fatigue [Recovered/Resolved]
  - Inappropriate schedule of product administration [Unknown]
  - Urinary tract infection [Recovered/Resolved]
  - Peripheral coldness [Not Recovered/Not Resolved]
  - Malaise [Recovered/Resolved]
  - Sepsis [Recovered/Resolved]

NARRATIVE: CASE EVENT DATE: 20180423
